FAERS Safety Report 16926483 (Version 3)
Quarter: 2020Q4

REPORT INFORMATION
  Report Type: Report from Study
  Country: US (occurrence: US)
  Receive Date: 20191016
  Receipt Date: 20201017
  Transmission Date: 20210113
  Serious: Yes (Hospitalization)
  Sender: FDA-Public Use
  Company Number: NVSC2019US002614

PATIENT
  Age: 68 Year
  Sex: Female
  Weight: 74.83 kg

DRUGS (7)
  1. TREPROSTINIL. [Suspect]
     Active Substance: TREPROSTINIL
     Dosage: 28 NANOGRAM PER KILOGRAM (/MIN CONTINUOUS)
     Route: 065
  2. AMBRISENTAN [Concomitant]
     Active Substance: AMBRISENTAN
     Indication: PRODUCT USED FOR UNKNOWN INDICATION
     Route: 065
  3. TREPROSTINIL. [Suspect]
     Active Substance: TREPROSTINIL
     Dosage: 60 NG/KG/MIN, CONT
     Route: 042
     Dates: start: 20190930
  4. REMODULIN [Concomitant]
     Active Substance: TREPROSTINIL
     Indication: PRODUCT USED FOR UNKNOWN INDICATION
     Route: 065
  5. WARFARIN [Concomitant]
     Active Substance: WARFARIN
     Indication: PRODUCT USED FOR UNKNOWN INDICATION
     Dosage: UNK
     Route: 065
  6. TREPROSTINIL. [Suspect]
     Active Substance: TREPROSTINIL
     Indication: PULMONARY ARTERIAL HYPERTENSION
     Dosage: 28 NANOGRAM PER KILOGRAM (/MIN CONTINUOUS)
     Route: 042
     Dates: start: 20190930
  7. ELIQUIS [Concomitant]
     Active Substance: APIXABAN
     Indication: PRODUCT USED FOR UNKNOWN INDICATION
     Route: 065

REACTIONS (10)
  - Decreased appetite [Unknown]
  - Arthralgia [Recovering/Resolving]
  - Headache [Recovering/Resolving]
  - Nausea [Unknown]
  - Diarrhoea [Unknown]
  - Back pain [Unknown]
  - Cardiac flutter [Unknown]
  - Pain in extremity [Recovering/Resolving]
  - Pain [Unknown]
  - Muscle fatigue [Recovering/Resolving]

NARRATIVE: CASE EVENT DATE: 20200507
